FAERS Safety Report 19300804 (Version 1)
Quarter: 2021Q2

REPORT INFORMATION
  Report Type: Spontaneous
  Country: US (occurrence: US)
  Receive Date: 20210525
  Receipt Date: 20210525
  Transmission Date: 20210717
  Serious: No
  Sender: FDA-Public Use
  Company Number: US-SA-2021SA167095

PATIENT
  Sex: Male

DRUGS (1)
  1. DUPIXENT [Suspect]
     Active Substance: DUPILUMAB
     Indication: DERMATITIS ATOPIC
     Route: 050
     Dates: start: 202102

REACTIONS (3)
  - Dry skin [Unknown]
  - Pruritus [Unknown]
  - Eczema [Unknown]

NARRATIVE: CASE EVENT DATE: 202105
